FAERS Safety Report 8906258 (Version 1)
Quarter: 2012Q4

REPORT INFORMATION
  Report Type: Spontaneous
  Country: US (occurrence: None)
  Receive Date: 20121112
  Receipt Date: 20121112
  Transmission Date: 20130627
  Serious: Yes (Life-Threatening, Hospitalization)
  Sender: FDA-Public Use
  Company Number: None

PATIENT
  Age: 51 Year
  Sex: Male
  Weight: 97.52 kg

DRUGS (1)
  1. DEXILANT [Suspect]
     Indication: GERD
     Dates: start: 20121023, end: 20121104

REACTIONS (2)
  - Atrial fibrillation [None]
  - Palpitations [None]
